FAERS Safety Report 19445630 (Version 6)
Quarter: 2022Q2

REPORT INFORMATION
  Report Type: Report from Study
  Country: CA (occurrence: CA)
  Receive Date: 20210622
  Receipt Date: 20220412
  Transmission Date: 20220721
  Serious: Yes (Life-Threatening, Hospitalization, Other)
  Sender: FDA-Public Use
  Company Number: CA-JNJFOC-20210632481

PATIENT
  Age: 79 Year
  Sex: Female

DRUGS (2)
  1. SIMPONI [Suspect]
     Active Substance: GOLIMUMAB
     Indication: Rheumatoid arthritis
     Route: 058
     Dates: start: 20161130, end: 20210424
  2. SIMPONI [Suspect]
     Active Substance: GOLIMUMAB
     Route: 058
     Dates: end: 20211027

REACTIONS (10)
  - Pneumonia [Recovering/Resolving]
  - Photopsia [Unknown]
  - Tension headache [Unknown]
  - Bacterial infection [Unknown]
  - Heart valve operation [Recovering/Resolving]
  - Cardiac pacemaker insertion [Recovering/Resolving]
  - Post procedural complication [Recovering/Resolving]
  - Rheumatoid arthritis [Recovered/Resolved]
  - Mobility decreased [Unknown]
  - Balance disorder [Unknown]

NARRATIVE: CASE EVENT DATE: 20210525
